FAERS Safety Report 11677629 (Version 4)
Quarter: 2016Q1

REPORT INFORMATION
  Report Type: Spontaneous
  Country: US (occurrence: US)
  Receive Date: 20151028
  Receipt Date: 20160203
  Transmission Date: 20160525
  Serious: Yes (Hospitalization, Other)
  Sender: FDA-Public Use
  Company Number: US-PFIZER INC-2015359894

PATIENT
  Age: 47 Year
  Sex: Male
  Weight: 118 kg

DRUGS (2)
  1. KLONOPIN [Concomitant]
     Active Substance: CLONAZEPAM
     Dosage: TWO 2 MG TABLETS EACH NIGHT
  2. PRISTIQ EXTENDED RELEASE [Suspect]
     Active Substance: DESVENLAFAXINE SUCCINATE
     Indication: MANIA
     Dosage: 50 MG, 1X/DAY EACH NIGHT
     Route: 048
     Dates: start: 201410, end: 201510

REACTIONS (13)
  - Nasopharyngitis [Recovered/Resolved]
  - Intentional product misuse [Unknown]
  - Pyrexia [Recovered/Resolved]
  - Depression [Unknown]
  - Product use issue [Unknown]
  - Anxiety [Not Recovered/Not Resolved]
  - Hepatic cancer stage I [Recovered/Resolved]
  - Anger [Not Recovered/Not Resolved]
  - Hepatitis C [Recovered/Resolved]
  - Weight decreased [Recovered/Resolved]
  - Withdrawal syndrome [Recovered/Resolved]
  - Mania [Not Recovered/Not Resolved]
  - Screaming [Recovered/Resolved]

NARRATIVE: CASE EVENT DATE: 2014
